FAERS Safety Report 20577082 (Version 4)
Quarter: 2022Q2

REPORT INFORMATION
  Report Type: Report from Study
  Country: DK (occurrence: None)
  Receive Date: 20220310
  Receipt Date: 20220407
  Transmission Date: 20220721
  Serious: Yes (Hospitalization)
  Sender: FDA-Public Use
  Company Number: DK-Eisai Medical Research-EC-2022-108585

PATIENT
  Age: 46 Year
  Sex: Female
  Weight: 141 kg

DRUGS (17)
  1. LENVATINIB [Suspect]
     Active Substance: LENVATINIB
     Indication: Clear cell renal cell carcinoma
     Dosage: STARTING AT 20 MILLIGRAM, FLUCTUATED DOSAGE
     Route: 048
     Dates: start: 20220104, end: 20220131
  2. LENVATINIB [Suspect]
     Active Substance: LENVATINIB
     Route: 048
     Dates: start: 20220202, end: 20220208
  3. QUAVONLIMAB [Suspect]
     Active Substance: QUAVONLIMAB
     Indication: Clear cell renal cell carcinoma
     Dosage: QUAVONLIMAB 25 MG (+) PEMBROLIZUMAB 400 MG, CO-FORMULATED PRODUCT
     Route: 041
     Dates: start: 20220104, end: 20220104
  4. PEMBROLIZUMAB [Suspect]
     Active Substance: PEMBROLIZUMAB
     Dosage: QUAVONLIMAB 25 MG (+) PEMBROLIZUMAB 400 MG, CO-FORMULATED PRODUCT
     Route: 041
     Dates: start: 20220316, end: 20220316
  5. ALBUTEROL [Concomitant]
     Active Substance: ALBUTEROL
     Dates: start: 20160303
  6. ACETAMINOPHEN [Concomitant]
     Active Substance: ACETAMINOPHEN
     Dates: start: 20201102
  7. UNIKALK FORTE [Concomitant]
     Dates: start: 20201104
  8. PANTOPRAZOLE [Concomitant]
     Active Substance: PANTOPRAZOLE
     Dates: start: 20210517
  9. TINZAPARIN SODIUM [Concomitant]
     Active Substance: TINZAPARIN SODIUM
     Route: 058
     Dates: start: 20211221, end: 20220307
  10. TRAMADOL HYDROCHLORIDE [Concomitant]
     Active Substance: TRAMADOL HYDROCHLORIDE
     Dates: start: 20220103, end: 20220329
  11. IBUPROFEN [Concomitant]
     Active Substance: IBUPROFEN
     Dates: start: 20220103, end: 20220221
  12. DOMPERIDONE [Concomitant]
     Active Substance: DOMPERIDONE
     Dates: start: 20220104, end: 20220201
  13. HYDROCHLOROTHIAZIDE\LOSARTAN POTASSIUM [Concomitant]
     Active Substance: HYDROCHLOROTHIAZIDE\LOSARTAN POTASSIUM
     Dates: start: 20220111, end: 20220316
  14. ONDANSETRON [Concomitant]
     Active Substance: ONDANSETRON
     Dates: start: 20220125
  15. ZOPICLONE [Concomitant]
     Active Substance: ZOPICLONE
     Dates: start: 20220118
  16. QUAVONLIMAB [Suspect]
     Active Substance: QUAVONLIMAB
  17. PEMBROLIZUMAB [Suspect]
     Active Substance: PEMBROLIZUMAB

REACTIONS (1)
  - Transient ischaemic attack [Recovered/Resolved with Sequelae]

NARRATIVE: CASE EVENT DATE: 20220204
